FAERS Safety Report 15621516 (Version 1)
Quarter: 2018Q4

REPORT INFORMATION
  Report Type: Spontaneous
  Country: CN (occurrence: CN)
  Receive Date: 20181115
  Receipt Date: 20181115
  Transmission Date: 20190205
  Serious: Yes (Other)
  Sender: FDA-Public Use
  Company Number: CN-ELI_LILLY_AND_COMPANY-CN201811004563

PATIENT
  Age: 71 Year
  Sex: Female

DRUGS (3)
  1. HUMULIN 70/30 [Suspect]
     Active Substance: INSULIN HUMAN
     Indication: PRODUCT USED FOR UNKNOWN INDICATION
     Dosage: 12 U, BID
     Route: 058
     Dates: start: 2013, end: 2018
  2. HUMULIN R [Suspect]
     Active Substance: INSULIN HUMAN
     Indication: PRODUCT USED FOR UNKNOWN INDICATION
     Dosage: 14 U, BID
     Route: 058
  3. METOPROLOL SUCCINATE. [Concomitant]
     Active Substance: METOPROLOL SUCCINATE
     Indication: DIABETES MELLITUS
     Dosage: 1 DF, DAILY
     Route: 048

REACTIONS (5)
  - Hydrocephalus [Unknown]
  - Parkinson^s disease [Unknown]
  - Cerebral atrophy [Unknown]
  - Dementia Alzheimer^s type [Unknown]
  - Cardiac disorder [Unknown]

NARRATIVE: CASE EVENT DATE: 2013
